FAERS Safety Report 6972444-5 (Version None)
Quarter: 2010Q3

REPORT INFORMATION
  Report Type: 
  Country: None (occurrence: None)
  Receive Date: 20100909
  Receipt Date: 20100827
  Transmission Date: 20110219
  Serious: Yes (Other)
  Sender: FDA-Public Use
  Company Number: PHHY2010CA57014

PATIENT

DRUGS (2)
  1. RASILEZ [Suspect]
     Indication: BLOOD PRESSURE
     Dosage: DAILY 150 MG
     Route: 048
  2. MONOCOR [Concomitant]

REACTIONS (1)
  - URINE ALBUMIN/CREATININE RATIO INCREASED [None]
